FAERS Safety Report 4647568-8 (Version None)
Quarter: 2005Q2

REPORT INFORMATION
  Report Type: 
  Country: None (occurrence: None)
  Receive Date: 20050426
  Receipt Date: 20050419
  Transmission Date: 20051028
  Serious: Yes (Hospitalization)
  Sender: FDA-Public Use
  Company Number: USA-2005-0019910

PATIENT
  Age: 52 Year
  Sex: Male

DRUGS (1)
  1. OXYCONTIN [Suspect]
     Indication: PAIN
     Dosage: 140 MG, TID, ORAL
     Route: 048

REACTIONS (5)
  - GASTRIC BYPASS [None]
  - INADEQUATE ANALGESIA [None]
  - LIBIDO DECREASED [None]
  - POST PROCEDURAL COMPLICATION [None]
  - WEIGHT DECREASED [None]
